FAERS Safety Report 6687026-2 (Version None)
Quarter: 2010Q2

REPORT INFORMATION
  Report Type: 
  Country: None (occurrence: None)
  Receive Date: 20100419
  Receipt Date: 20100407
  Transmission Date: 20101027
  Serious: Yes (Other)
  Sender: FDA-Public Use
  Company Number: PL-WYE-H14488010

PATIENT
  Age: 47 Year
  Sex: Female

DRUGS (1)
  1. TEMSIROLIMUS [Suspect]
     Indication: RENAL CELL CARCINOMA
     Dosage: 25MG PER WEEK
     Dates: start: 20090801, end: 20100201

REACTIONS (16)
  - ALANINE AMINOTRANSFERASE INCREASED [None]
  - ANAEMIA [None]
  - ASPARTATE AMINOTRANSFERASE INCREASED [None]
  - ASTHENIA [None]
  - BLOOD BILIRUBIN INCREASED [None]
  - BLOOD CHOLESTEROL ABNORMAL [None]
  - BLOOD TRIGLYCERIDES ABNORMAL [None]
  - DISEASE PROGRESSION [None]
  - FATIGUE [None]
  - INFECTION [None]
  - NEUTROPENIA [None]
  - PANCREATITIS [None]
  - PNEUMONIA [None]
  - PNEUMONITIS [None]
  - RASH [None]
  - THROMBOCYTOPENIA [None]
